FAERS Safety Report 7977027-6 (Version None)
Quarter: 2011Q4

REPORT INFORMATION
  Report Type: 
  Country: None (occurrence: None)
  Receive Date: 20111213
  Receipt Date: 20111111
  Transmission Date: 20120403
  Serious: No
  Sender: FDA-Public Use
  Company Number: US-AMGEN-USASP2011053223

PATIENT
  Age: 31 Year
  Sex: Female

DRUGS (4)
  1. ENBREL [Suspect]
     Indication: PSORIATIC ARTHROPATHY
     Dosage: 50 MG, 2 TIMES/WK
     Dates: start: 20110810
  2. ENBREL [Suspect]
     Indication: PSORIASIS
  3. METHOTREXATE [Concomitant]
     Dosage: 15 MG, QWK
     Dates: start: 20111019
  4. PREDNISONE TAB [Concomitant]

REACTIONS (4)
  - DRUG EFFECT DECREASED [None]
  - PAIN IN EXTREMITY [None]
  - GUTTATE PSORIASIS [None]
  - PSORIASIS [None]
